FAERS Safety Report 16757133 (Version 4)
Quarter: 2019Q4

REPORT INFORMATION
  Report Type: Report from Study
  Country: JP (occurrence: JP)
  Receive Date: 20190829
  Receipt Date: 20191210
  Transmission Date: 20200122
  Serious: Yes (Hospitalization, Other)
  Sender: FDA-Public Use
  Company Number: JP-BRISTOL-MYERS SQUIBB COMPANY-BMS-2019-083873

PATIENT
  Age: 63 Year
  Sex: Female
  Weight: 52.3 kg

DRUGS (8)
  1. ELENTAL [Concomitant]
     Active Substance: AMINO ACIDS\CARBOHYDRATES\MINERALS\SOYBEAN OIL\VITAMINS
     Indication: PROPHYLAXIS
     Dosage: 80 GRAM, QD
     Route: 048
     Dates: start: 20190202
  2. NAUZELIN [Concomitant]
     Active Substance: DOMPERIDONE
     Indication: NAUSEA
     Dosage: 10 MG, Q8H
     Route: 048
     Dates: start: 20190404
  3. NIVOLUMAB [Suspect]
     Active Substance: NIVOLUMAB
     Indication: GASTRIC CANCER
     Dosage: 360 MILLIGRAM, Q3WK
     Route: 041
     Dates: start: 20190221
  4. TEGAFUR,GIMERACIL,OTERACIL POTASSIUM [Suspect]
     Active Substance: GIMERACIL\OTERACIL\TEGAFUR
     Indication: GASTRIC CANCER
     Dosage: 50 MG, Q12H
     Route: 048
     Dates: start: 20190221
  5. HIRUDOID [Concomitant]
     Active Substance: GLYCOSAMINOGLYCANS
     Indication: DRY SKIN
     Dosage: APPROPRIATE AMOUNT, EVERYDAY
     Route: 061
     Dates: start: 20190506
  6. MIYA-BM [Concomitant]
     Active Substance: CLOSTRIDIUM BUTYRICUM SPORES STRAIN M-55
     Indication: CONSTIPATION
     Dosage: 1 DOSAGE FORM, Q8H
     Route: 048
     Dates: start: 20190116
  7. SINSERON [Concomitant]
     Active Substance: INDISETRON HYDROCHLORIDE
     Indication: NAUSEA
     Dosage: 8 MG, PRN(NAUSEA)
     Route: 048
     Dates: start: 20190404
  8. MAGNESIUM OXIDE. [Concomitant]
     Active Substance: MAGNESIUM OXIDE
     Indication: CONSTIPATION
     Dosage: 330 MILLIGRAM, Q8H
     Route: 048
     Dates: start: 20190718

REACTIONS (2)
  - Cerebral infarction [Recovered/Resolved]
  - Colon adenoma [Not Recovered/Not Resolved]

NARRATIVE: CASE EVENT DATE: 20190725
